FAERS Safety Report 6218634-0 (Version None)
Quarter: 2009Q2

REPORT INFORMATION
  Report Type: 
  Country: None (occurrence: None)
  Receive Date: 20090608
  Receipt Date: 20090602
  Transmission Date: 20091009
  Serious: Yes (Disabling)
  Sender: FDA-Public Use
  Company Number: US-MERCK-0905USA02262

PATIENT
  Age: 85 Year
  Sex: Female

DRUGS (5)
  1. FOSAMAX [Suspect]
     Route: 048
     Dates: start: 20090416, end: 20090502
  2. SPIRONOLACTONE [Concomitant]
     Indication: OEDEMA
     Route: 065
  3. ASPIRIN [Concomitant]
     Indication: CARDIOVASCULAR EVENT PROPHYLAXIS
     Route: 065
  4. NITROFURANTOIN [Concomitant]
     Indication: URINARY TRACT DISORDER
     Route: 065
  5. VITAMIN D (UNSPECIFIED) [Concomitant]
     Indication: VITAMIN D DECREASED
     Route: 065
     Dates: start: 20090402

REACTIONS (5)
  - ASTHENIA [None]
  - DIARRHOEA [None]
  - MYALGIA [None]
  - NAUSEA [None]
  - PAIN [None]
